FAERS Safety Report 9067534 (Version 1)
Quarter: 2013Q1

REPORT INFORMATION
  Report Type: Spontaneous
  Country: US (occurrence: US)
  Receive Date: 20130128
  Receipt Date: 20130128
  Transmission Date: 20140127
  Serious: Yes (Hospitalization)
  Sender: FDA-Public Use
  Company Number: US-MERCK-1301USA010395

PATIENT
  Age: 56 Year
  Sex: Female
  Weight: 94.79 kg

DRUGS (2)
  1. VORINOSTAT [Suspect]
     Dosage: 200 MG, DAYS 1-7 AND 15-21
     Route: 048
  2. REVLIMID [Suspect]
     Indication: PLASMA CELL MYELOMA
     Dosage: 10 MG, DAYS 1-21
     Route: 048
     Dates: start: 20120621

REACTIONS (6)
  - Haemoglobin decreased [Unknown]
  - Blood creatinine increased [Unknown]
  - Scar [Unknown]
  - Fungal infection [Unknown]
  - Eustachian tube dysfunction [Unknown]
  - Dyspnoea [Unknown]
